FAERS Safety Report 6486537-2 (Version None)
Quarter: 2009Q4

REPORT INFORMATION
  Report Type: 
  Country: None (occurrence: None)
  Receive Date: 20091124
  Receipt Date: 20091029
  Transmission Date: 20100525
  Serious: Yes (Death)
  Sender: FDA-Public Use
  Company Number: GAM-168-09-AU

PATIENT
  Age: 70 Year
  Sex: Male

DRUGS (4)
  1. OCTAGAM [Suspect]
     Indication: GUILLAIN-BARRE SYNDROME
     Dosage: 40 G
     Route: 042
     Dates: start: 20091013, end: 20091013
  2. PERINDOPRIL [Concomitant]
  3. SIMVASTATIN [Concomitant]
  4. DILTIAZEM [Concomitant]

REACTIONS (1)
  - CARDIAC ARREST [None]
